FAERS Safety Report 12133532 (Version 11)
Quarter: 2017Q1

REPORT INFORMATION
  Report Type: Report from Study
  Country: DE (occurrence: DE)
  Receive Date: 20160301
  Receipt Date: 20170328
  Transmission Date: 20170428
  Serious: Yes (Life-Threatening, Hospitalization)
  Sender: FDA-Public Use
  Company Number: DE-ROCHE-1643588

PATIENT
  Age: 51 Year
  Sex: Female
  Weight: 69 kg

DRUGS (19)
  1. PANTOZOL [Concomitant]
     Active Substance: PANTOPRAZOLE SODIUM
     Route: 065
     Dates: start: 20151002, end: 20151004
  2. LOPERAMID [Concomitant]
     Active Substance: LOPERAMIDE
     Indication: DIARRHOEA
     Route: 065
     Dates: start: 20160203, end: 20160207
  3. BEVACIZUMAB [Suspect]
     Active Substance: BEVACIZUMAB
     Indication: COLORECTAL CANCER METASTATIC
     Dosage: LAST DOSE PRIOR TO SERIOUS ADVERSE EVENT ON 23/SEP/2015
     Route: 042
     Dates: start: 20150701, end: 20151007
  4. OXALIPLATIN. [Suspect]
     Active Substance: OXALIPLATIN
     Indication: COLORECTAL CANCER METASTATIC
     Dosage: LAST DOSE PRIOR TO SERIOUS ADVERSE EVENT ON 23/SEP/2015
     Route: 042
     Dates: start: 20150701, end: 20151007
  5. IBUPROFEN. [Concomitant]
     Active Substance: IBUPROFEN
     Route: 065
     Dates: start: 20151002, end: 20151004
  6. CEFUROXIM [Concomitant]
     Active Substance: CEFUROXIME
     Indication: LUNG INFECTION
     Route: 065
     Dates: start: 20160331, end: 20160406
  7. CALCIUM FOLINATE [Suspect]
     Active Substance: LEUCOVORIN CALCIUM
     Indication: COLORECTAL CANCER METASTATIC
     Dosage: LAST DOSE PRIOR TO SERIOUS ADVERSE EVENT ON 23/SEP/2015
     Route: 042
     Dates: start: 20150701, end: 20151007
  8. 5-FLUOROURACIL [Suspect]
     Active Substance: FLUOROURACIL
     Dosage: LAST DOSE PRIOR TO SERIOUS ADVERSE EVENT ON 23/SEP/2015
     Route: 042
     Dates: start: 20150701, end: 20151007
  9. BISOPROLOL [Concomitant]
     Active Substance: BISOPROLOL
     Route: 065
     Dates: start: 2009
  10. DEXAMETHASON [Concomitant]
     Active Substance: DEXAMETHASONE
     Route: 065
     Dates: start: 20150701
  11. MCP [Concomitant]
     Active Substance: METOCLOPRAMIDE HYDROCHLORIDE
     Route: 065
     Dates: start: 20150701
  12. FENISTIL (GERMANY) [Concomitant]
     Dosage: 1 AMPULE
     Route: 065
     Dates: start: 20150701
  13. DEKRISTOL [Concomitant]
     Active Substance: CHOLECALCIFEROL
     Route: 065
     Dates: start: 20151001
  14. GRANISETRON [Concomitant]
     Active Substance: GRANISETRON
     Route: 065
     Dates: start: 20150701
  15. LOPEDIUM [Concomitant]
     Active Substance: LOPERAMIDE
     Route: 065
     Dates: start: 20150701
  16. RANITIDIN [Concomitant]
     Active Substance: RANITIDINE HYDROCHLORIDE
     Dosage: 1 AMPULE
     Route: 065
     Dates: start: 20150701
  17. BEVACIZUMAB [Suspect]
     Active Substance: BEVACIZUMAB
     Dosage: RESTARTED
     Route: 042
     Dates: start: 20160106
  18. 5-FLUOROURACIL [Suspect]
     Active Substance: FLUOROURACIL
     Indication: COLORECTAL CANCER METASTATIC
     Dosage: LAST DOSE PRIOR TO SERIOUS ADVERSE EVENT ON 23/SEP/2015
     Route: 042
     Dates: start: 20150701, end: 20151007
  19. ALENDRONIC ACID [Concomitant]
     Active Substance: ALENDRONIC ACID
     Route: 065

REACTIONS (2)
  - Osteonecrosis [Recovered/Resolved]
  - Ileus [Recovered/Resolved]

NARRATIVE: CASE EVENT DATE: 20151002
